FAERS Safety Report 5081650-9 (Version None)
Quarter: 2006Q3

REPORT INFORMATION
  Report Type: 
  Country: None (occurrence: None)
  Receive Date: 20060811
  Receipt Date: 20060802
  Transmission Date: 20061208
  Serious: Yes (Other)
  Sender: FDA-Public Use
  Company Number: 060802-0000748

PATIENT
  Age: 7 Day
  Sex: 0
  Weight: 0.6759 kg

DRUGS (1)
  1. INDOMETHACIN [Suspect]
     Dosage: IV
     Route: 042

REACTIONS (4)
  - FEEDING TUBE COMPLICATION [None]
  - GASTROINTESTINAL PERFORATION [None]
  - NEONATAL DISORDER [None]
  - PERITONITIS [None]
